FAERS Safety Report 11633721 (Version 1)
Quarter: 2015Q4

REPORT INFORMATION
  Report Type: Spontaneous
  Country: US (occurrence: US)
  Receive Date: 20151015
  Receipt Date: 20151015
  Transmission Date: 20160304
  Serious: Yes (Other)
  Sender: FDA-Public Use
  Company Number: US-APOTEX-2015AP010292

PATIENT
  Age: 3 Year
  Sex: Male

DRUGS (2)
  1. FENTANYL. [Suspect]
     Active Substance: FENTANYL
     Indication: AGITATION POSTOPERATIVE
     Dosage: ABOUT 2 MCG/KG/HOUR
     Route: 041
  2. MIDAZOLAM HYDROCHLORIDE INJECTION [Suspect]
     Active Substance: MIDAZOLAM HYDROCHLORIDE
     Indication: AGITATION POSTOPERATIVE
     Dosage: ABOUT 2 MG/KG/HOUR
     Route: 041

REACTIONS (1)
  - Delirium [Recovered/Resolved]
